FAERS Safety Report 18236236 (Version 1)
Quarter: 2020Q3

REPORT INFORMATION
  Report Type: Spontaneous
  Country: PL (occurrence: PL)
  Receive Date: 20200906
  Receipt Date: 20200906
  Transmission Date: 20201103
  Serious: Yes (Other)
  Sender: FDA-Public Use
  Company Number: PL-ROCHE-2649638

PATIENT
  Sex: Female

DRUGS (2)
  1. ZOLADEX [Concomitant]
     Active Substance: GOSERELIN ACETATE
  2. HERCEPTIN [Suspect]
     Active Substance: TRASTUZUMAB
     Indication: HER2 POSITIVE BREAST CANCER
     Dosage: AFTER SURGERY, EVERY 3 WEEKS, TOTAL: 18 APPLICATION
     Route: 065
     Dates: start: 20180508

REACTIONS (1)
  - Disease recurrence [Unknown]
